FAERS Safety Report 5710337-1 (Version None)
Quarter: 2008Q2

REPORT INFORMATION
  Report Type: 
  Country: None (occurrence: None)
  Receive Date: 20080418
  Receipt Date: 20080407
  Transmission Date: 20081010
  Serious: Yes (Other)
  Sender: FDA-Public Use
  Company Number: US-PFIZER INC-2008031385

PATIENT
  Sex: Female
  Weight: 88.636 kg

DRUGS (5)
  1. LYRICA [Suspect]
     Indication: SCIATIC NERVE NEUROPATHY
     Dates: start: 20070701, end: 20080101
  2. LEXAPRO [Concomitant]
     Indication: DEPRESSION
  3. WELLBUTRIN [Concomitant]
     Indication: DEPRESSION
  4. PREMPRO [Concomitant]
  5. LISINOPRIL [Concomitant]
     Indication: BLOOD PRESSURE

REACTIONS (2)
  - ABASIA [None]
  - DYSPNOEA [None]
